FAERS Safety Report 19057358 (Version 4)
Quarter: 2022Q1

REPORT INFORMATION
  Report Type: Spontaneous
  Country: IN (occurrence: IN)
  Receive Date: 20210325
  Receipt Date: 20220207
  Transmission Date: 20220423
  Serious: Yes (Other)
  Sender: FDA-Public Use
  Company Number: IN-PFIZER INC-2021304675

PATIENT
  Age: 59 Year
  Sex: Female

DRUGS (2)
  1. LORLATINIB [Suspect]
     Active Substance: LORLATINIB
     Indication: Non-small cell lung cancer
     Dosage: 100 MG, 1X/DAY
     Route: 048
     Dates: start: 20210316
  2. LORLATINIB [Suspect]
     Active Substance: LORLATINIB
     Dosage: 100 MG ONCE DAILY
     Route: 048
     Dates: start: 20200903

REACTIONS (8)
  - Deep vein thrombosis [Recovered/Resolved]
  - Hip arthroplasty [Unknown]
  - Oedema peripheral [Unknown]
  - White blood cells urine positive [Unknown]
  - Hiccups [Unknown]
  - Polyuria [Unknown]
  - Pain [Unknown]
  - Off label use [Unknown]

NARRATIVE: CASE EVENT DATE: 20210101
